FAERS Safety Report 20578122 (Version 1)
Quarter: 2022Q1

REPORT INFORMATION
  Report Type: Spontaneous
  Country: US (occurrence: US)
  Receive Date: 20220310
  Receipt Date: 20220310
  Transmission Date: 20220423
  Serious: No
  Sender: FDA-Public Use
  Company Number: US-TERSERA THERAPEUTICS LLC-2021TRS002837

PATIENT

DRUGS (2)
  1. XERMELO [Suspect]
     Active Substance: TELOTRISTAT ETHYL
     Indication: Carcinoid syndrome
     Dosage: 250 MG, TID
     Route: 065
     Dates: start: 20210301, end: 202106
  2. LANREOTIDE [Concomitant]
     Active Substance: LANREOTIDE
     Indication: Product used for unknown indication
     Dosage: 120 MG, Q28 DAYS
     Route: 065

REACTIONS (12)
  - Feeling abnormal [Recovering/Resolving]
  - Ageusia [Recovering/Resolving]
  - Irritability [Recovering/Resolving]
  - Depression [Recovering/Resolving]
  - Vomiting [Unknown]
  - Weight decreased [Unknown]
  - Defaecation urgency [Unknown]
  - Fatigue [Unknown]
  - Abdominal pain upper [Unknown]
  - Nausea [Unknown]
  - Decreased appetite [Unknown]
  - Drug ineffective [Unknown]

NARRATIVE: CASE EVENT DATE: 20210301
